FAERS Safety Report 25119455 (Version 1)
Quarter: 2025Q1

REPORT INFORMATION
  Report Type: Spontaneous
  Country: CA (occurrence: CA)
  Receive Date: 20250325
  Receipt Date: 20250325
  Transmission Date: 20250409
  Serious: Yes (Death, Other)
  Sender: Haleon PLC
  Company Number: CA-002147023-NVSC2025CA047524

PATIENT
  Sex: Female

DRUGS (24)
  1. DICLOFENAC SODIUM [Suspect]
     Active Substance: DICLOFENAC SODIUM
     Indication: Product used for unknown indication
     Route: 065
  2. DICLOFENAC SODIUM [Suspect]
     Active Substance: DICLOFENAC SODIUM
     Route: 065
  3. DICLOFENAC SODIUM [Suspect]
     Active Substance: DICLOFENAC SODIUM
     Dosage: 50 MG, QD
     Route: 065
  4. DICLOFENAC SODIUM [Suspect]
     Active Substance: DICLOFENAC SODIUM
     Route: 065
  5. DICLOFENAC SODIUM [Suspect]
     Active Substance: DICLOFENAC SODIUM
     Route: 065
  6. DICLOFENAC SODIUM [Suspect]
     Active Substance: DICLOFENAC SODIUM
     Route: 065
  7. DICLOFENAC SODIUM [Suspect]
     Active Substance: DICLOFENAC SODIUM
     Route: 065
  8. DICLOFENAC SODIUM [Suspect]
     Active Substance: DICLOFENAC SODIUM
     Route: 065
  9. TRIAMCINOLONE ACETONIDE [Suspect]
     Active Substance: TRIAMCINOLONE ACETONIDE
     Indication: Product used for unknown indication
     Route: 065
  10. ERELZI [Suspect]
     Active Substance: ETANERCEPT-SZZS
     Indication: Product used for unknown indication
     Route: 065
  11. ERELZI [Suspect]
     Active Substance: ETANERCEPT-SZZS
     Route: 065
  12. ALENDRONIC ACID [Suspect]
     Active Substance: ALENDRONIC ACID
     Indication: Product used for unknown indication
     Route: 065
  13. ALENDRONIC ACID [Suspect]
     Active Substance: ALENDRONIC ACID
     Route: 065
  14. ALENDRONIC ACID [Suspect]
     Active Substance: ALENDRONIC ACID
     Route: 065
  15. ALENDRONIC ACID [Suspect]
     Active Substance: ALENDRONIC ACID
     Route: 065
  16. PREGABALIN [Suspect]
     Active Substance: PREGABALIN
     Indication: Product used for unknown indication
     Route: 065
  17. DICLOFENAC POTASSIUM [Suspect]
     Active Substance: DICLOFENAC POTASSIUM
     Indication: Product used for unknown indication
     Route: 065
  18. DICLOFENAC POTASSIUM [Suspect]
     Active Substance: DICLOFENAC POTASSIUM
     Route: 065
  19. ADALIMUMAB [Suspect]
     Active Substance: ADALIMUMAB
     Indication: Product used for unknown indication
     Route: 065
  20. ADALIMUMAB [Suspect]
     Active Substance: ADALIMUMAB
     Route: 065
  21. ADALIMUMAB [Suspect]
     Active Substance: ADALIMUMAB
     Route: 065
  22. ADALIMUMAB [Suspect]
     Active Substance: ADALIMUMAB
     Route: 065
  23. OXYCODONE [Suspect]
     Active Substance: OXYCODONE
     Indication: Product used for unknown indication
     Route: 065
  24. QUETIAPINE FUMARATE [Suspect]
     Active Substance: QUETIAPINE FUMARATE
     Indication: Product used for unknown indication
     Route: 065

REACTIONS (60)
  - Pulmonary fibrosis [Fatal]
  - Insomnia [Fatal]
  - Impaired healing [Fatal]
  - Pneumonia [Fatal]
  - Hypersensitivity [Fatal]
  - Hypertension [Fatal]
  - Hypercholesterolaemia [Fatal]
  - Pruritus [Fatal]
  - Psoriatic arthropathy [Fatal]
  - Infusion related reaction [Fatal]
  - Prescribed overdose [Fatal]
  - Joint swelling [Fatal]
  - Peripheral swelling [Fatal]
  - Pain in extremity [Fatal]
  - Rheumatic fever [Fatal]
  - Nasopharyngitis [Fatal]
  - Osteoporosis [Fatal]
  - Retinitis [Fatal]
  - Seronegative arthritis [Fatal]
  - Memory impairment [Fatal]
  - Joint range of motion decreased [Fatal]
  - Laryngitis [Fatal]
  - Liver injury [Fatal]
  - Psoriasis [Fatal]
  - Pemphigus [Fatal]
  - Sinusitis [Fatal]
  - Joint dislocation [Fatal]
  - Spondylitis [Fatal]
  - Nausea [Fatal]
  - Injury [Fatal]
  - Hepatic enzyme increased [Fatal]
  - Liver function test increased [Fatal]
  - Lower limb fracture [Fatal]
  - Helicobacter infection [Fatal]
  - Red blood cell sedimentation rate increased [Fatal]
  - Sleep disorder due to a general medical condition [Fatal]
  - Muscle injury [Fatal]
  - Musculoskeletal stiffness [Fatal]
  - Pain [Fatal]
  - Road traffic accident [Fatal]
  - Pyrexia [Fatal]
  - Infection [Fatal]
  - Irritable bowel syndrome [Fatal]
  - Osteoarthritis [Fatal]
  - Sleep disorder [Fatal]
  - Lupus-like syndrome [Fatal]
  - Oedema peripheral [Fatal]
  - Pericarditis [Fatal]
  - Lupus vulgaris [Fatal]
  - Hepatic cirrhosis [Fatal]
  - Hypoaesthesia [Fatal]
  - Muscular weakness [Fatal]
  - Mobility decreased [Fatal]
  - Joint stiffness [Fatal]
  - Sciatica [Fatal]
  - Rash [Fatal]
  - Rheumatoid arthritis [Fatal]
  - Prescribed underdose [Fatal]
  - Oedema [Fatal]
  - Rheumatoid factor positive [Fatal]
